FAERS Safety Report 9251458 (Version 1)
Quarter: 2013Q2

REPORT INFORMATION
  Report Type: Spontaneous
  Country: US (occurrence: US)
  Receive Date: 20130424
  Receipt Date: 20130424
  Transmission Date: 20140414
  Serious: Yes (Other)
  Sender: FDA-Public Use
  Company Number: US-JNJFOC-20130407289

PATIENT
  Age: 40 Year
  Sex: Male

DRUGS (10)
  1. INVEGA SUSTENNA [Suspect]
     Indication: SCHIZOAFFECTIVE DISORDER
     Route: 030
  2. INVEGA SUSTENNA [Suspect]
     Indication: SCHIZOAFFECTIVE DISORDER
     Route: 030
  3. INVEGA SUSTENNA [Suspect]
     Indication: SCHIZOAFFECTIVE DISORDER
     Route: 030
  4. DEPAKOTE [Concomitant]
     Route: 065
  5. GABAPENTIN [Concomitant]
     Route: 065
  6. LEVOTHYROXINE [Concomitant]
     Route: 065
  7. BENADRYL [Concomitant]
     Route: 065
  8. COGENTIN [Concomitant]
     Dosage: 2 MG IN THE MORNING
     Route: 065
  9. ZOLOFT [Concomitant]
     Dosage: 200 MG IN THE MORNING AND 100 MG AT BEDTIME
     Route: 065
  10. PANTOPRAZOLE [Concomitant]
     Dosage: 40 MG IN THE MORNING
     Route: 065

REACTIONS (5)
  - Homicidal ideation [Unknown]
  - Suicidal ideation [Unknown]
  - Paranoia [Unknown]
  - Delusion [Unknown]
  - Therapeutic product ineffective [Unknown]
